FAERS Safety Report 9690550 (Version 2)
Quarter: 2013Q4

REPORT INFORMATION
  Report Type: Spontaneous
  Country: US (occurrence: US)
  Receive Date: 20131115
  Receipt Date: 20131203
  Transmission Date: 20140711
  Serious: No
  Sender: FDA-Public Use
  Company Number: US-PFIZER INC-2013325825

PATIENT
  Age: 73 Year
  Sex: Female
  Weight: 82.54 kg

DRUGS (23)
  1. LYRICA [Suspect]
     Indication: DIABETIC NEUROPATHY
     Dosage: 100 MG, 2X/DAY
     Route: 048
     Dates: start: 2011
  2. FISH OIL [Concomitant]
     Dosage: 1000 MG, 2X/DAY
  3. CALCIUM/VITAMIN D3 [Concomitant]
     Dosage: 1200 MG, 2X/DAY
  4. LASIX [Concomitant]
     Dosage: 80 MG, 1X/DAY
  5. TOPROL XL [Concomitant]
     Dosage: 50 MG, 1X/DAY
  6. VASOTEC [Concomitant]
     Dosage: 10 MG, 2X/DAY
  7. LEXAPRO [Concomitant]
     Dosage: 20 MG, 1X/DAY
  8. PREDNISONE [Concomitant]
     Indication: HEPATIC CIRRHOSIS
     Dosage: 5 MG, 1X/DAY
  9. MYSOLINE [Concomitant]
     Dosage: 50 MG, 2X/DAY
  10. GLUCOPHAGE [Concomitant]
     Dosage: 500 MG, 3X/DAY
  11. ZANTAC [Concomitant]
     Dosage: 300 MG, 1X/DAY AT BEDTIME
  12. SPIRONOLACTONE [Concomitant]
     Dosage: 25 MG, 2X/DAY
  13. OMEPRAZOLE [Concomitant]
     Dosage: 20 MG, 2X/DAY
  14. FENOFIBRIC ACID [Concomitant]
     Dosage: 135 MG, 1X/DAY
  15. ZETIA [Concomitant]
     Dosage: 10 MG, 1X/DAY AT BEDTIME
  16. CRESTOR [Concomitant]
     Dosage: 20 MG, 1X/DAY
  17. LANTUS [Concomitant]
     Indication: DIABETES MELLITUS
     Dosage: 24 UNITS, 2X/DAY
  18. NOVOLOG [Concomitant]
     Indication: DIABETES MELLITUS
     Dosage: THREE UNITS BEFORE BREAKFAST AND EIGHT UNITS AND SUPPER EACH
  19. BYETTA [Concomitant]
     Indication: DIABETES MELLITUS
     Dosage: TWO TIMES A DAY (ONCE BEFORE BREAKFAST AND ONCE BEFORE SUPPER)
  20. FOLIC ACID [Concomitant]
     Dosage: UNK
  21. POTASSIUM CHLORIDE [Concomitant]
     Dosage: 10 MEQ, 2X/DAY
  22. WELBY HEALTH COMPLETE 50+ MULTIVITAMIN MULTIFUNCTIONAL SUPPLEMENT [Concomitant]
     Indication: VITAMIN SUPPLEMENTATION
     Dosage: UNK
  23. VITAMIN E [Concomitant]
     Indication: CARDIAC DISORDER
     Dosage: 400 IU, UNK

REACTIONS (2)
  - Malaise [Not Recovered/Not Resolved]
  - Nasopharyngitis [Not Recovered/Not Resolved]
